FAERS Safety Report 6608628-5 (Version None)
Quarter: 2010Q1

REPORT INFORMATION
  Report Type: 
  Country: None (occurrence: None)
  Receive Date: 20100226
  Receipt Date: 20100226
  Transmission Date: 20100710
  Serious: No
  Sender: FDA-Public Use
  Company Number: None

PATIENT
  Age: 43 Year
  Sex: Male
  Weight: 112.4921 kg

DRUGS (10)
  1. GEMFIBROZIL [Suspect]
     Dosage: 1200MG PO
     Route: 048
  2. SIMVASTATIN [Suspect]
     Dosage: 40MG PO
     Route: 048
  3. ZIPRASIDONE HCL [Concomitant]
  4. DIVALPROEX SODIUM [Concomitant]
  5. CITALOPRAM HYDROBROMIDE [Concomitant]
  6. LORAZEPAM [Concomitant]
  7. SERTRALINE HCL [Concomitant]
  8. OMEPRAZOLE [Concomitant]
  9. LORATADINE [Concomitant]
  10. LISINOPRIL [Concomitant]

REACTIONS (1)
  - PAIN IN EXTREMITY [None]
